FAERS Safety Report 14269350 (Version 2)
Quarter: 2018Q1

REPORT INFORMATION
  Report Type: Spontaneous
  Country: JP (occurrence: JP)
  Receive Date: 20171211
  Receipt Date: 20180108
  Transmission Date: 20180508
  Serious: Yes (Hospitalization)
  Sender: FDA-Public Use
  Company Number: JP-ALLERGAN-1769327US

PATIENT
  Age: 48 Year
  Sex: Male

DRUGS (4)
  1. ASENAPINE MALEATE - BP [Suspect]
     Active Substance: ASENAPINE MALEATE
     Indication: SCHIZOPHRENIA
     Dosage: 5 MG, QD
     Route: 060
     Dates: start: 201702, end: 2017
  2. ASENAPINE MALEATE - BP [Suspect]
     Active Substance: ASENAPINE MALEATE
     Dosage: 10 MG, PRN
     Route: 060
     Dates: start: 201710, end: 20171024
  3. ASENAPINE MALEATE - BP [Suspect]
     Active Substance: ASENAPINE MALEATE
     Dosage: 5 MG IN THE MORNING AND 10 MG IN THE EVENING
     Route: 060
     Dates: start: 2017, end: 20171024
  4. RISPERIDONE. [Suspect]
     Active Substance: RISPERIDONE
     Indication: PRODUCT USED FOR UNKNOWN INDICATION
     Dosage: UNKNOWN
     Route: 065
     Dates: start: 201710, end: 20171024

REACTIONS (4)
  - Off label use [Unknown]
  - Neuroleptic malignant syndrome [Recovered/Resolved]
  - Water intoxication [Recovered/Resolved]
  - Prescribed overdose [Unknown]

NARRATIVE: CASE EVENT DATE: 201710
